FAERS Safety Report 9587766 (Version 1)
Quarter: 2013Q4

REPORT INFORMATION
  Report Type: Spontaneous
  Country: CA (occurrence: CA)
  Receive Date: 20131003
  Receipt Date: 20131003
  Transmission Date: 20140711
  Serious: Yes (Hospitalization, Other)
  Sender: FDA-Public Use
  Company Number: CA-WATSON-2013-17293

PATIENT
  Age: 15 Year
  Sex: Female

DRUGS (2)
  1. DOXYCYCLINE (UNKNOWN) [Suspect]
     Indication: ACNE
     Dosage: UNK
     Route: 065
  2. DOXYCYCLINE (UNKNOWN) [Suspect]
     Dosage: 100 MG, DAILY
     Route: 065

REACTIONS (1)
  - Drug reaction with eosinophilia and systemic symptoms [Recovered/Resolved]
